FAERS Safety Report 5354022-7 (Version None)
Quarter: 2007Q2

REPORT INFORMATION
  Report Type: 
  Country: None (occurrence: None)
  Receive Date: 20070521
  Receipt Date: 20070206
  Transmission Date: 20071010
  Serious: No
  Sender: FDA-Public Use
  Company Number: WAES 0702USA00937

PATIENT
  Age: 61 Year
  Sex: Female
  Weight: 111.5849 kg

DRUGS (7)
  1. JANUVIA [Suspect]
     Indication: DIABETES MELLITUS
     Dosage: 100 MG/DAILY/PO
     Route: 048
     Dates: start: 20070109, end: 20070129
  2. AVANDIA [Concomitant]
  3. CRESTOR [Concomitant]
  4. LASIX [Concomitant]
  5. NOVOLOG [Concomitant]
  6. PRILOSEC [Concomitant]
  7. METFORMIN HCL [Concomitant]

REACTIONS (1)
  - RASH [None]
